FAERS Safety Report 5495546-1 (Version None)
Quarter: 2007Q4

REPORT INFORMATION
  Report Type: 
  Country: None (occurrence: None)
  Receive Date: 20071015
  Receipt Date: 20061129
  Transmission Date: 20080405
  Serious: Yes (Other)
  Sender: FDA-Public Use
  Company Number: S06-USA-05000-01

PATIENT
  Age: 33 Year
  Sex: Male

DRUGS (4)
  1. LEXAPRO [Suspect]
     Indication: DEPRESSION
     Dosage: 10 MG QD PO
     Route: 048
     Dates: start: 20061001
  2. CHEMOTHERAPY (NOS) [Suspect]
     Indication: B-CELL LYMPHOMA
     Dates: start: 20060601, end: 20061201
  3. RITUXAN [Suspect]
     Indication: B-CELL LYMPHOMA
     Dates: start: 20060601, end: 20061201
  4. LEVAQUIN [Suspect]
     Indication: PROPHYLAXIS
     Dates: start: 20061122, end: 20061201

REACTIONS (1)
  - WHITE BLOOD CELL COUNT DECREASED [None]
